FAERS Safety Report 6477448-7 (Version None)
Quarter: 2009Q4

REPORT INFORMATION
  Report Type: 
  Country: None (occurrence: None)
  Receive Date: 20091207
  Receipt Date: 20091110
  Transmission Date: 20100525
  Serious: Yes (Other)
  Sender: FDA-Public Use
  Company Number: RU-SANOFI-AVENTIS-2009SA000905

PATIENT
  Age: 53 Year
  Sex: Male

DRUGS (3)
  1. LASIX [Suspect]
     Indication: DRUG USE FOR UNKNOWN INDICATION
  2. SUPRASTIN [Suspect]
     Indication: DRUG USE FOR UNKNOWN INDICATION
  3. TAVEGYL /AUS/ [Suspect]
     Indication: DRUG USE FOR UNKNOWN INDICATION

REACTIONS (3)
  - ANGIOEDEMA [None]
  - PRURITUS [None]
  - RASH [None]
